FAERS Safety Report 21398323 (Version 2)
Quarter: 2022Q4

REPORT INFORMATION
  Report Type: Spontaneous
  Country: US (occurrence: US)
  Receive Date: 20220930
  Receipt Date: 20221017
  Transmission Date: 20230112
  Serious: No
  Sender: FDA-Public Use
  Company Number: US-PFIZER INC-PV202200072173

PATIENT
  Age: 82 Year
  Sex: Male
  Weight: 79.365 kg

DRUGS (1)
  1. PAXLOVID [Suspect]
     Active Substance: NIRMATRELVIR\RITONAVIR
     Indication: COVID-19 treatment
     Dosage: UNK (150 X2) -100MG )
     Dates: start: 20220925

REACTIONS (2)
  - Pain in extremity [Recovered/Resolved]
  - Product packaging difficult to open [Recovered/Resolved]

NARRATIVE: CASE EVENT DATE: 20220925
